FAERS Safety Report 6996624-8 (Version None)
Quarter: 2010Q3

REPORT INFORMATION
  Report Type: 
  Country: None (occurrence: None)
  Receive Date: 20100918
  Receipt Date: 20090515
  Transmission Date: 20110219
  Serious: No
  Sender: FDA-Public Use
  Company Number: US-WYE-H09445809

PATIENT
  Sex: Female

DRUGS (5)
  1. EFFEXOR XR [Suspect]
     Indication: DEPRESSION
  2. EFFEXOR XR [Suspect]
     Indication: ANXIETY
  3. WELLBUTRIN SR [Concomitant]
     Indication: DEPRESSION
  4. LAMICTAL [Concomitant]
     Indication: DEPRESSION
  5. LAMICTAL [Concomitant]
     Indication: ANXIETY

REACTIONS (1)
  - NONSPECIFIC REACTION [None]
